FAERS Safety Report 8135708-8 (Version None)
Quarter: 2012Q1

REPORT INFORMATION
  Report Type: 
  Country: None (occurrence: None)
  Receive Date: 20120210
  Receipt Date: 20120204
  Transmission Date: 20120608
  Serious: Yes (Hospitalization)
  Sender: FDA-Public Use
  Company Number: IPC201202-000045

PATIENT
  Age: 54 Year
  Sex: Female

DRUGS (3)
  1. METFORMIN HYDROCHLORIDE [Suspect]
     Dosage: 1000 MG, TWO TIMES DAILY
  2. LISINOPRIL [Suspect]
     Dosage: 5 MG, DAILY
  3. SIMVASTATIN [Suspect]
     Dosage: 20 MG, DAILY

REACTIONS (9)
  - RENAL FAILURE ACUTE [None]
  - MULTI-ORGAN FAILURE [None]
  - SHOCK [None]
  - HYPOTHERMIA [None]
  - URINARY TRACT INFECTION [None]
  - HAEMODYNAMIC INSTABILITY [None]
  - LACTIC ACIDOSIS [None]
  - RESPIRATORY FAILURE [None]
  - SYNCOPE [None]
